FAERS Safety Report 9331276 (Version 1)
Quarter: 2013Q2

REPORT INFORMATION
  Report Type: Spontaneous
  Country: US (occurrence: US)
  Receive Date: 20130605
  Receipt Date: 20130605
  Transmission Date: 20140414
  Serious: No
  Sender: FDA-Public Use
  Company Number: US-VERTEX PHARMACEUTICALS INC-2013-006672

PATIENT
  Age: 59 Year
  Sex: Female
  Weight: 72 kg

DRUGS (4)
  1. INCIVEK [Suspect]
     Indication: HEPATITIS C
     Dosage: 750 MG, TID
     Route: 048
     Dates: start: 20130301, end: 201305
  2. RIBAVIRIN [Suspect]
     Indication: HEPATITIS C
     Dosage: 3 TABS AM, 2 TABS PM
     Route: 048
     Dates: start: 20130301, end: 201304
  3. RIBAVIRIN [Suspect]
     Dosage: 3 DF, QD
     Route: 048
     Dates: start: 201304
  4. PEGASYS [Suspect]
     Indication: HEPATITIS C
     Dosage: 180 ?G, QW
     Route: 058
     Dates: start: 20130301

REACTIONS (6)
  - Dyspnoea [Unknown]
  - Vitreous floaters [Not Recovered/Not Resolved]
  - Fatigue [Unknown]
  - Oral candidiasis [Not Recovered/Not Resolved]
  - Swelling face [Recovered/Resolved]
  - Anaemia [Unknown]
